FAERS Safety Report 10351635 (Version 2)
Quarter: 2014Q3

REPORT INFORMATION
  Report Type: Spontaneous
  Country: US (occurrence: US)
  Receive Date: 20140730
  Receipt Date: 20140926
  Transmission Date: 20150326
  Serious: Yes (Other)
  Sender: FDA-Public Use
  Company Number: US-PFIZER INC-2014209737

PATIENT
  Age: 73 Year
  Sex: Female
  Weight: 112 kg

DRUGS (2)
  1. LYRICA [Suspect]
     Active Substance: PREGABALIN
     Indication: DIABETIC NEUROPATHY
     Dosage: 300 MG, 2X/DAY
     Route: 048
  2. METFORMIN [Concomitant]
     Active Substance: METFORMIN HYDROCHLORIDE
     Indication: TYPE 2 DIABETES MELLITUS
     Dosage: UNK, 2X/DAY

REACTIONS (4)
  - Cerebrovascular accident [Recovered/Resolved]
  - Mental impairment [Recovered/Resolved]
  - Nervous system disorder [Recovered/Resolved]
  - Blood test abnormal [Recovered/Resolved]
